FAERS Safety Report 24061608 (Version 1)
Quarter: 2024Q3

REPORT INFORMATION
  Report Type: Spontaneous
  Country: US (occurrence: US)
  Receive Date: 20240708
  Receipt Date: 20240708
  Transmission Date: 20241016
  Serious: No
  Sender: CIDARA THERAPEUTICS
  Company Number: US-CIDARA THERAPEUTICS, INC-2024-RZ-0022-US

PATIENT

DRUGS (1)
  1. REZZAYO [Suspect]
     Active Substance: REZAFUNGIN
     Dosage: UNK

REACTIONS (1)
  - Off label use [Unknown]
